FAERS Safety Report 21413820 (Version 1)
Quarter: 2022Q4

REPORT INFORMATION
  Report Type: Spontaneous
  Country: US (occurrence: US)
  Receive Date: 20221006
  Receipt Date: 20221006
  Transmission Date: 20230112
  Serious: No
  Sender: FDA-Public Use
  Company Number: US-ALLERGAN-2223064US

PATIENT
  Sex: Female

DRUGS (3)
  1. QULIPTA [Suspect]
     Active Substance: ATOGEPANT
     Indication: Product used for unknown indication
     Dosage: UNK
  2. CASEIN\DIETARY SUPPLEMENT\THEANINE [Suspect]
     Active Substance: CASEIN\DIETARY SUPPLEMENT\THEANINE
     Indication: Product used for unknown indication
     Dosage: UNK
  3. FLUCONAZOLE [Suspect]
     Active Substance: FLUCONAZOLE
     Indication: Product used for unknown indication
     Dosage: 150 MG

REACTIONS (1)
  - Balance disorder [Unknown]
